FAERS Safety Report 8555624-7 (Version None)
Quarter: 2012Q3

REPORT INFORMATION
  Report Type: 
  Country: None (occurrence: None)
  Receive Date: 20120731
  Receipt Date: 20120717
  Transmission Date: 20120928
  Serious: Yes (Hospitalization)
  Sender: FDA-Public Use
  Company Number: US-ELI_LILLY_AND_COMPANY-US201207005589

PATIENT
  Sex: Female

DRUGS (6)
  1. CYMBALTA [Suspect]
     Dosage: 30 MG, UNK
     Dates: start: 20120401
  2. CYMBALTA [Suspect]
     Dosage: 60 MG, UNK
     Dates: start: 20070901
  3. CYMBALTA [Suspect]
     Dosage: 30 MG, UNK
  4. CYMBALTA [Suspect]
     Indication: DEPRESSION
     Dosage: 20 MG, UNK
     Dates: start: 20060901
  5. CYMBALTA [Suspect]
     Dosage: 20 MG, UNK
  6. CYMBALTA [Suspect]
     Dosage: 30 MG, UNK

REACTIONS (4)
  - HEPATIC ENZYME INCREASED [None]
  - ANXIETY [None]
  - NEUROPATHY PERIPHERAL [None]
  - SPINAL FUSION SURGERY [None]
